FAERS Safety Report 10436945 (Version 2)
Quarter: 2015Q1

REPORT INFORMATION
  Report Type: Spontaneous
  Country: US (occurrence: US)
  Receive Date: 20140908
  Receipt Date: 20150106
  Transmission Date: 20150720
  Serious: Yes (Death, Hospitalization)
  Sender: FDA-Public Use
  Company Number: US-SA-2014SA118870

PATIENT
  Age: 68 Year
  Sex: Female

DRUGS (23)
  1. LISINOPRIL. [Concomitant]
     Active Substance: LISINOPRIL
  2. MINOXIDIL. [Concomitant]
     Active Substance: MINOXIDIL
  3. GABAPENTIN. [Concomitant]
     Active Substance: GABAPENTIN
  4. LASIX [Concomitant]
     Active Substance: FUROSEMIDE
  5. LANTUS [Concomitant]
     Active Substance: INSULIN GLARGINE
  6. CELEXA [Concomitant]
     Active Substance: CITALOPRAM HYDROBROMIDE
  7. CLONIDINE. [Concomitant]
     Active Substance: CLONIDINE
  8. ZESTRIL [Concomitant]
     Active Substance: LISINOPRIL
  9. PLAVIX [Suspect]
     Active Substance: CLOPIDOGREL BISULFATE
     Indication: BLOOD PRESSURE
     Route: 048
     Dates: start: 200802, end: 20080826
  10. ARICEPT [Concomitant]
     Active Substance: DONEPEZIL HYDROCHLORIDE
  11. PLAVIX [Suspect]
     Active Substance: CLOPIDOGREL BISULFATE
     Indication: CARDIAC DISORDER
     Route: 048
     Dates: start: 200802, end: 20080826
  12. LEVAQUIN [Concomitant]
     Active Substance: LEVOFLOXACIN
  13. MAGNESIUM OXIDE. [Concomitant]
     Active Substance: MAGNESIUM OXIDE
  14. ASPIRIN. [Concomitant]
     Active Substance: ASPIRIN
  15. NORVASC [Concomitant]
     Active Substance: AMLODIPINE BESYLATE
  16. LORTAB [Concomitant]
     Active Substance: ACETAMINOPHEN\HYDROCODONE BITARTRATE
  17. ZAROXOLYN [Concomitant]
     Active Substance: METOLAZONE
  18. COREG [Concomitant]
     Active Substance: CARVEDILOL
  19. HYDRALAZINE [Concomitant]
     Active Substance: HYDRALAZINE HYDROCHLORIDE
  20. CARAFATE [Concomitant]
     Active Substance: SUCRALFATE
  21. DIGOXIN. [Concomitant]
     Active Substance: DIGOXIN
  22. PROTONIX [Concomitant]
     Active Substance: PANTOPRAZOLE SODIUM
  23. MAXZIDE [Concomitant]
     Active Substance: HYDROCHLOROTHIAZIDE\TRIAMTERENE

REACTIONS (6)
  - Ear haemorrhage [Unknown]
  - Gastrointestinal haemorrhage [Unknown]
  - Epistaxis [Unknown]
  - Mouth haemorrhage [Unknown]
  - Rectal haemorrhage [Unknown]
  - Death [Fatal]

NARRATIVE: CASE EVENT DATE: 20080826
